FAERS Safety Report 10144881 (Version 1)
Quarter: 2014Q2

REPORT INFORMATION
  Report Type: Spontaneous
  Country: US (occurrence: US)
  Receive Date: 20140430
  Receipt Date: 20140430
  Transmission Date: 20141212
  Serious: No
  Sender: FDA-Public Use
  Company Number: US-SANOFI-AVENTIS-2013SA076894

PATIENT
  Sex: Female

DRUGS (7)
  1. DEMEROL [Suspect]
     Route: 065
  2. LYRICA [Concomitant]
  3. CYMBALTA [Concomitant]
  4. SYNTHROID [Concomitant]
  5. LOPRESSOR [Concomitant]
  6. NAPROXEN [Concomitant]
  7. LASIX [Concomitant]

REACTIONS (1)
  - Hypersensitivity [Unknown]
